FAERS Safety Report 9337764 (Version 2)
Quarter: 2013Q2

REPORT INFORMATION
  Report Type: Spontaneous
  Country: US (occurrence: US)
  Receive Date: 20130607
  Receipt Date: 20130617
  Transmission Date: 20140414
  Serious: Yes (Death, Hospitalization, Other)
  Sender: FDA-Public Use
  Company Number: US-PFIZER INC-2013168962

PATIENT
  Age: 64 Year
  Sex: Female

DRUGS (12)
  1. ENBREL [Suspect]
     Dosage: UNK
  2. XELJANZ [Suspect]
     Dosage: UNK, BID
     Route: 048
     Dates: start: 20130131, end: 20130411
  3. ORENCIA [Suspect]
     Dosage: 12.5 MG, QWK
  4. LISINOPRIL [Concomitant]
     Dosage: 20/12.5 MG QD
  5. MOTRIN [Concomitant]
     Dosage: 800 MG, TID
  6. ARAVA [Concomitant]
     Dosage: 200 MG, QD
  7. ZOLOFT [Concomitant]
     Dosage: 500 MG, BID
  8. VIT D [Concomitant]
     Dosage: 50000 UNK, QWK
  9. NEXIUM [Concomitant]
     Dosage: 40 MG, QD
  10. NUVIGIL [Concomitant]
     Dosage: 150 QD/ PNR
  11. ACTEMRA [Concomitant]
     Dosage: 4 MG, UNK
  12. HYDROCODONE [Concomitant]
     Dosage: UNK UNK, TID

REACTIONS (22)
  - Sepsis [Fatal]
  - Septic shock [Unknown]
  - Pulmonary valve incompetence [Unknown]
  - Pain [Unknown]
  - Acute respiratory failure [Unknown]
  - Cerebral infarction [Unknown]
  - Cerebral thrombosis [Unknown]
  - Altered state of consciousness [Unknown]
  - Drug dependence [Unknown]
  - Mental status changes [Unknown]
  - Rheumatoid nodule [Unknown]
  - Asthenia [Unknown]
  - Gout [Unknown]
  - Delirium [Unknown]
  - Convulsion [Unknown]
  - Staphylococcal bacteraemia [Unknown]
  - Arthritis bacterial [Unknown]
  - Hyponatraemia [Unknown]
  - Joint swelling [Unknown]
  - Purulent discharge [Unknown]
  - Skin ulcer [Unknown]
  - Arthritis [Unknown]
